FAERS Safety Report 11143350 (Version 1)
Quarter: 2015Q2

REPORT INFORMATION
  Report Type: Report from Study
  Country: ES (occurrence: ES)
  Receive Date: 20150526
  Receipt Date: 20150526
  Transmission Date: 20150821
  Serious: Yes (Other)
  Sender: FDA-Public Use
  Company Number: ES-ROCHE-1579210

PATIENT

DRUGS (3)
  1. RIBAVIRIN. [Suspect]
     Active Substance: RIBAVIRIN
     Indication: HEPATITIS C
     Route: 065
  2. PEG-INTERFERON ALFA 2A [Suspect]
     Active Substance: PEGINTERFERON ALFA-2A
     Indication: HEPATITIS C
     Route: 065
  3. SOFOSBUVIR [Suspect]
     Active Substance: SOFOSBUVIR
     Indication: HEPATITIS C
     Route: 065

REACTIONS (19)
  - Autoimmune haemolytic anaemia [Unknown]
  - Neutropenia [Unknown]
  - Renal failure [Unknown]
  - Skin infection [Unknown]
  - Aplasia [Unknown]
  - Pancytopenia [Unknown]
  - Sepsis [Recovered/Resolved]
  - Pneumonia cytomegaloviral [Recovered/Resolved]
  - Cytomegalovirus infection [Recovered/Resolved]
  - Pseudomembranous colitis [Recovered/Resolved]
  - Bone marrow failure [Unknown]
  - Hepatocellular carcinoma [Unknown]
  - Deep vein thrombosis [Unknown]
  - Peritonitis bacterial [Recovered/Resolved]
  - Ascites [Recovered/Resolved]
  - Aplastic anaemia [Unknown]
  - Tuberculosis [Recovered/Resolved]
  - Diabetes mellitus [Unknown]
  - Histiocytosis haematophagic [Unknown]
